FAERS Safety Report 4441646-4 (Version None)
Quarter: 2004Q3

REPORT INFORMATION
  Report Type: 
  Country: None (occurrence: None)
  Receive Date: 20040907
  Receipt Date: 20040830
  Transmission Date: 20050211
  Serious: Yes (Hospitalization, Other)
  Sender: FDA-Public Use
  Company Number: US-AMGEN-US087934

PATIENT
  Sex: Male
  Weight: 97.6 kg

DRUGS (14)
  1. ARANESP [Suspect]
     Indication: RENAL FAILURE CHRONIC
     Route: 058
     Dates: start: 20031001
  2. PREDNISONE [Concomitant]
     Dates: start: 20020417
  3. PROGRAF [Concomitant]
     Dates: start: 20020417
  4. CELLCEPT [Concomitant]
     Dates: start: 20020417
  5. AVANDIA [Concomitant]
     Dates: start: 20020417
  6. NEURONTIN [Concomitant]
     Dates: start: 20020417
  7. PROTONIX [Concomitant]
     Dates: start: 20020417
  8. K-DUR 10 [Concomitant]
     Dates: start: 20040406
  9. MAGNESIUM OXIDE [Concomitant]
     Dates: start: 20040406
  10. LIPITOR [Concomitant]
     Dates: start: 20030903
  11. LOPRESSOR [Concomitant]
     Dates: start: 20020417
  12. LANTUS [Concomitant]
     Dates: start: 20030603
  13. ASPIRIN [Concomitant]
     Dates: start: 20020417
  14. NIASPAN [Concomitant]
     Dates: start: 20021106

REACTIONS (2)
  - DRUG INEFFECTIVE [None]
  - HAEMOGLOBIN DECREASED [None]
